FAERS Safety Report 17231174 (Version 1)
Quarter: 2020Q1

REPORT INFORMATION
  Report Type: Spontaneous
  Country: US (occurrence: US)
  Receive Date: 20200103
  Receipt Date: 20200103
  Transmission Date: 20200409
  Serious: No
  Sender: FDA-Public Use
  Company Number: US-PFIZER INC-2019560127

PATIENT
  Age: 91 Year
  Sex: Female

DRUGS (5)
  1. PRAVASTATIN. [Suspect]
     Active Substance: PRAVASTATIN
     Dosage: UNK
  2. GOLD [Suspect]
     Active Substance: GOLD
  3. CELEBREX [Suspect]
     Active Substance: CELECOXIB
     Dosage: UNK
  4. AMOXICILLIN. [Suspect]
     Active Substance: AMOXICILLIN
     Dosage: UNK
  5. CARBAMAZEPINE. [Suspect]
     Active Substance: CARBAMAZEPINE
     Dosage: UNK

REACTIONS (3)
  - Rash [Unknown]
  - Diarrhoea [Unknown]
  - Drug hypersensitivity [Unknown]
